FAERS Safety Report 8256014-7 (Version None)
Quarter: 2012Q2

REPORT INFORMATION
  Report Type: 
  Country: None (occurrence: None)
  Receive Date: 20120403
  Receipt Date: 20120326
  Transmission Date: 20120825
  Serious: Yes (Other)
  Sender: FDA-Public Use
  Company Number: US-BAYER-2011-119020

PATIENT
  Sex: Female

DRUGS (3)
  1. MIRENA [Suspect]
     Indication: GENITAL HAEMORRHAGE
  2. MIRENA [Suspect]
     Indication: MENORRHAGIA
  3. MIRENA [Suspect]
     Indication: CONTRACEPTION
     Dosage: 20 MCG/24HR, CONT
     Dates: start: 20090101

REACTIONS (2)
  - VAGINAL HAEMORRHAGE [None]
  - DEVICE DISLOCATION [None]
